FAERS Safety Report 5469807-6 (Version None)
Quarter: 2007Q3

REPORT INFORMATION
  Report Type: 
  Country: None (occurrence: None)
  Receive Date: 20070927
  Receipt Date: 20070917
  Transmission Date: 20080115
  Serious: Yes (Other)
  Sender: FDA-Public Use
  Company Number: FR-AMGEN-US230055

PATIENT
  Age: 65 Year
  Sex: Female

DRUGS (2)
  1. ENBREL [Suspect]
     Indication: RHEUMATOID ARTHRITIS
     Dosage: UNKNOWN
     Route: 058
     Dates: start: 20050101, end: 20070101
  2. CORTICOSTEROID NOS [Concomitant]
     Dosage: UNKNOWN
     Route: 048

REACTIONS (1)
  - TUBERCULOSIS OF INTRATHORACIC LYMPH NODES [None]
